FAERS Safety Report 9458498 (Version 2)
Quarter: 2013Q4

REPORT INFORMATION
  Report Type: Spontaneous
  Country: IR (occurrence: IR)
  Receive Date: 20130814
  Receipt Date: 20131024
  Transmission Date: 20140711
  Serious: Yes (Other)
  Sender: FDA-Public Use
  Company Number: IR-ROXANE LABORATORIES, INC.-2013-RO-01327RO

PATIENT
  Age: 11 Year
  Sex: Male

DRUGS (5)
  1. PROPRANOLOL [Suspect]
     Indication: TREMOR
     Dosage: 20 MG
  2. RISPERIDONE [Suspect]
     Indication: PANIC DISORDER
     Dosage: 2 MG
  3. RISPERIDONE [Suspect]
     Indication: BIPOLAR I DISORDER
  4. SODIUM VALPROATE [Suspect]
     Indication: PANIC DISORDER
     Dosage: 400 MG
  5. SODIUM VALPROATE [Suspect]
     Indication: BIPOLAR I DISORDER

REACTIONS (2)
  - Mania [Recovered/Resolved]
  - Tremor [Recovered/Resolved]
